FAERS Safety Report 6523077-6 (Version None)
Quarter: 2009Q4

REPORT INFORMATION
  Report Type: 
  Country: None (occurrence: None)
  Receive Date: 20091222
  Receipt Date: 20091210
  Transmission Date: 20100525
  Serious: Yes (Death)
  Sender: FDA-Public Use
  Company Number: 2009029672

PATIENT

DRUGS (1)
  1. FENTANYL CITRATE [Suspect]
     Dosage: BU
     Route: 002

REACTIONS (1)
  - DEATH [None]
